FAERS Safety Report 23839355 (Version 2)
Quarter: 2024Q2

REPORT INFORMATION
  Report Type: Report from Study
  Country: US (occurrence: US)
  Receive Date: 20240509
  Receipt Date: 20240625
  Transmission Date: 20240715
  Serious: Yes (Other)
  Sender: FDA-Public Use
  Company Number: US-ABBVIE-4292030

PATIENT
  Age: 66 Year
  Sex: Female
  Weight: 49.441 kg

DRUGS (3)
  1. IMBRUVICA [Suspect]
     Active Substance: IBRUTINIB
     Indication: Chronic lymphocytic leukaemia
     Dosage: FORM STRENGTH: 280 MILLIGRAM?LAST ADMIN DATE- 2019
     Route: 048
     Dates: start: 20190713
  2. IMBRUVICA [Suspect]
     Active Substance: IBRUTINIB
     Indication: Chronic lymphocytic leukaemia
     Dosage: FORM STRENGTH: 280 MILLIGRAM
     Route: 048
     Dates: start: 20191214, end: 20240402
  3. IMBRUVICA [Suspect]
     Active Substance: IBRUTINIB
     Indication: Chronic lymphocytic leukaemia
     Dosage: FORM STRENGTH:280 MILLIGRAM
     Route: 048

REACTIONS (7)
  - Neck pain [Recovered/Resolved]
  - Osteoporosis [Recovering/Resolving]
  - Scoliosis [Unknown]
  - Myalgia [Not Recovered/Not Resolved]
  - Unevaluable event [Unknown]
  - Bone pain [Not Recovered/Not Resolved]
  - Tendonitis [Unknown]

NARRATIVE: CASE EVENT DATE: 20221025
